FAERS Safety Report 9867145 (Version 2)
Quarter: 2014Q2

REPORT INFORMATION
  Report Type: Spontaneous
  Country: CA (occurrence: CA)
  Receive Date: 20140204
  Receipt Date: 20140425
  Transmission Date: 20141212
  Serious: Yes (Other)
  Sender: FDA-Public Use
  Company Number: CA-VERTEX PHARMACEUTICALS INC-2014-000495

PATIENT
  Age: 57 Year
  Sex: Male
  Weight: 84 kg

DRUGS (7)
  1. INCIVEK [Suspect]
     Indication: HEPATITIS C
     Dosage: 750 MG, TID
     Route: 048
  2. PEGASYS [Suspect]
     Indication: HEPATITIS C
     Dosage: 180 ?G, QW
     Route: 058
  3. RIBAVIRIN [Suspect]
     Indication: HEPATITIS C
     Dosage: 1 EVERY 1 DAY
     Route: 048
  4. RIBAVIRIN [Suspect]
     Dosage: 1200 MG, QD
     Route: 065
  5. ESCITALOPRAM OXALATE [Concomitant]
  6. MILK THISTLE/OTHER THERAPEUTIC PRODUCTS [Concomitant]
  7. VITAMIN C [Concomitant]

REACTIONS (6)
  - Speech disorder [Unknown]
  - Lethargy [Unknown]
  - Pyrexia [Unknown]
  - Endocarditis [Unknown]
  - Escherichia bacteraemia [Unknown]
  - Staphylococcal sepsis [Unknown]
